FAERS Safety Report 6260606-4 (Version None)
Quarter: 2009Q3

REPORT INFORMATION
  Report Type: 
  Country: None (occurrence: None)
  Receive Date: 20090708
  Receipt Date: 20090708
  Transmission Date: 20100115
  Serious: Yes (Other)
  Sender: FDA-Public Use
  Company Number: IT-ABBOTT-09P-083-0581802-00

PATIENT
  Age: 4 Year
  Sex: Female
  Weight: 18.5 kg

DRUGS (2)
  1. VALPROATE SODIUM [Suspect]
     Indication: PARTIAL SEIZURES
  2. VALPROATE SODIUM [Suspect]

REACTIONS (2)
  - ELECTROENCEPHALOGRAM ABNORMAL [None]
  - STUPOR [None]
